FAERS Safety Report 8159641-0 (Version None)
Quarter: 2012Q1

REPORT INFORMATION
  Report Type: 
  Country: None (occurrence: None)
  Receive Date: 20120223
  Receipt Date: 20120221
  Transmission Date: 20120608
  Serious: Yes (Other)
  Sender: FDA-Public Use
  Company Number: AU-AMGEN-AUSCT2012008902

PATIENT
  Age: 39 Year
  Sex: Female

DRUGS (2)
  1. XGEVA [Suspect]
     Indication: BREAST CANCER
     Dosage: UNK, Q3WK
     Route: 058
     Dates: start: 20111023
  2. PACLITAXEL [Concomitant]
     Indication: BREAST CANCER
     Dosage: 170 MG, UNK
     Route: 042
     Dates: start: 20111205

REACTIONS (1)
  - PNEUMONITIS [None]
